FAERS Safety Report 6022794-4 (Version None)
Quarter: 2008Q4

REPORT INFORMATION
  Report Type: 
  Country: None (occurrence: None)
  Receive Date: 20081230
  Receipt Date: 20081217
  Transmission Date: 20090506
  Serious: Yes (Other)
  Sender: FDA-Public Use
  Company Number: TT-ELI_LILLY_AND_COMPANY-TT200811006280

PATIENT
  Age: 30 Year
  Sex: Female

DRUGS (3)
  1. CYMBALTA [Suspect]
     Indication: DEPRESSION
     Dosage: 30 MG, UNKNOWN
     Route: 048
     Dates: start: 20080101, end: 20080901
  2. CYMBALTA [Interacting]
     Dosage: 60 MG, DAILY (1/D)
     Route: 048
     Dates: start: 20080901, end: 20081112
  3. TRAZODONE HCL [Interacting]
     Indication: DEPRESSION
     Dosage: 50 MG, DAILY (1/D)
     Route: 048
     Dates: start: 20080101, end: 20081112

REACTIONS (4)
  - DRUG INTERACTION [None]
  - HEPATIC ENZYME INCREASED [None]
  - NEPHROLITHIASIS [None]
  - RASH PRURITIC [None]
